FAERS Safety Report 4935275-3 (Version None)
Quarter: 2006Q1

REPORT INFORMATION
  Report Type: 
  Country: None (occurrence: None)
  Receive Date: 20060307
  Receipt Date: 20060224
  Transmission Date: 20060701
  Serious: Yes (Death)
  Sender: FDA-Public Use
  Company Number: US-SANOFI-SYNTHELABO-A03200601052

PATIENT
  Sex: Male

DRUGS (6)
  1. PLAVIX [Suspect]
     Indication: DRUG USE FOR UNKNOWN INDICATION
     Route: 048
     Dates: start: 20040101
  2. AGGRENOX [Concomitant]
     Dosage: UNK
     Route: 048
  3. TRIAMTERENE [Concomitant]
     Dosage: UNK
     Route: 048
  4. ADVERT [Concomitant]
     Dosage: UNK
     Route: 048
  5. CLONIDINE [Concomitant]
     Dosage: UNK
     Route: 048
  6. ASPIRIN [Concomitant]
     Route: 048

REACTIONS (2)
  - CARDIAC DEATH [None]
  - CARDIAC DISORDER [None]
